FAERS Safety Report 9379172 (Version 2)
Quarter: 2013Q3

REPORT INFORMATION
  Report Type: Spontaneous
  Country: CN (occurrence: CN)
  Receive Date: 20130702
  Receipt Date: 20130729
  Transmission Date: 20140515
  Serious: Yes (Death, Other)
  Sender: FDA-Public Use
  Company Number: CN-ASTELLAS-2013JP006082

PATIENT
  Sex: Male

DRUGS (1)
  1. VESICARE [Suspect]
     Indication: BLADDER SPASM
     Dosage: 5 MG, UID/QD
     Route: 048

REACTIONS (3)
  - Death [Fatal]
  - Convulsion [Recovering/Resolving]
  - Muscle twitching [Recovering/Resolving]
